FAERS Safety Report 9491164 (Version 4)
Quarter: 2014Q1

REPORT INFORMATION
  Report Type: Report from Study
  Country: TW (occurrence: TW)
  Receive Date: 20130830
  Receipt Date: 20140120
  Transmission Date: 20141002
  Serious: Yes (Other)
  Sender: FDA-Public Use
  Company Number: PHHY2013TW094348

PATIENT
  Age: 59 Year
  Sex: Female
  Weight: 35 kg

DRUGS (4)
  1. SEBIVO [Suspect]
     Indication: HEPATITIS B
     Dosage: 600 MG
     Route: 048
     Dates: start: 20110412, end: 20130827
  2. HYDROXYCHLOROQUINE [Concomitant]
     Indication: SYSTEMIC LUPUS ERYTHEMATOSUS
     Dosage: 200 MG
     Route: 048
     Dates: start: 20000824
  3. CALBO [Concomitant]
     Indication: OSTEOPOROSIS
     Dosage: 1900 NG
     Route: 048
     Dates: start: 20101123
  4. PREDNISOLONE [Concomitant]
     Indication: SYSTEMIC LUPUS ERYTHEMATOSUS
     Dosage: 5 MG
     Route: 048
     Dates: start: 20000824, end: 20120228

REACTIONS (2)
  - Weight decreased [Recovering/Resolving]
  - Hypoaesthesia [Recovering/Resolving]
